FAERS Safety Report 4446227-4 (Version None)
Quarter: 2004Q3

REPORT INFORMATION
  Report Type: 
  Country: None (occurrence: None)
  Receive Date: 20040907
  Receipt Date: 20040901
  Transmission Date: 20050211
  Serious: Yes (Death)
  Sender: FDA-Public Use
  Company Number: 2004UW18395

PATIENT

DRUGS (1)
  1. SEROQUEL [Suspect]

REACTIONS (1)
  - OVERDOSE [None]
